FAERS Safety Report 15022738 (Version 7)
Quarter: 2019Q4

REPORT INFORMATION
  Report Type: Report from Study
  Country: BE (occurrence: BE)
  Receive Date: 20180618
  Receipt Date: 20191123
  Transmission Date: 20200122
  Serious: Yes (Hospitalization, Other)
  Sender: FDA-Public Use
  Company Number: PHHY2015BE003985

PATIENT
  Age: 42 Year
  Sex: Female

DRUGS (2)
  1. LEMTRADA [Suspect]
     Active Substance: ALEMTUZUMAB
     Indication: MULTIPLE SCLEROSIS
     Dosage: UNK
     Route: 065
     Dates: start: 20160418
  2. GILENYA [Suspect]
     Active Substance: FINGOLIMOD HYDROCHLORIDE
     Indication: MULTIPLE SCLEROSIS
     Dosage: UNK
     Route: 065
     Dates: start: 20121211, end: 20130611

REACTIONS (14)
  - Fatigue [Recovered/Resolved]
  - Vaginal infection [Unknown]
  - Hyperthyroidism [Recovered/Resolved]
  - Herpes zoster [Unknown]
  - Vaginal discharge [Unknown]
  - Muscle spasms [Unknown]
  - Diarrhoea [Unknown]
  - Pyrexia [Recovered/Resolved]
  - Blood alkaline phosphatase decreased [Unknown]
  - Lymphocyte count decreased [Unknown]
  - Neurological symptom [Recovered/Resolved]
  - Rash [Unknown]
  - Gamma-glutamyltransferase decreased [Unknown]
  - Tibia fracture [Unknown]

NARRATIVE: CASE EVENT DATE: 20130611
